FAERS Safety Report 5846208-X (Version None)
Quarter: 2008Q3

REPORT INFORMATION
  Report Type: 
  Country: None (occurrence: None)
  Receive Date: 20080814
  Receipt Date: 20080814
  Transmission Date: 20090109
  Serious: Yes (Hospitalization, Disabling, Other)
  Sender: FDA-Public Use
  Company Number: US-ABBOTT-08P-163-0442354-00

PATIENT
  Sex: Male

DRUGS (22)
  1. ERYTHROMYCIN BASE [Suspect]
     Indication: DRUG USE FOR UNKNOWN INDICATION
  2. TELITHROMYCIN [Suspect]
     Indication: BRONCHITIS
     Route: 048
     Dates: start: 20050301
  3. FLUOXETINE HYDROCHLORIDE [Concomitant]
     Indication: DRUG USE FOR UNKNOWN INDICATION
  4. LITHIUM CARBONATE [Concomitant]
     Indication: DRUG USE FOR UNKNOWN INDICATION
  5. GABAPENTIN [Concomitant]
     Indication: DRUG USE FOR UNKNOWN INDICATION
  6. LAMOTRIGINE [Concomitant]
     Indication: DRUG USE FOR UNKNOWN INDICATION
  7. MODAFINIL [Concomitant]
     Indication: DRUG USE FOR UNKNOWN INDICATION
  8. ALBUTEROL [Concomitant]
     Indication: DRUG USE FOR UNKNOWN INDICATION
  9. METHYLPREDNISOLONE 16MG TAB [Concomitant]
     Indication: DRUG USE FOR UNKNOWN INDICATION
  10. OMEPRAZOLE [Concomitant]
     Indication: DRUG USE FOR UNKNOWN INDICATION
  11. GALENIC /CODEINE/PROMETHAZINE/ [Concomitant]
     Indication: DRUG USE FOR UNKNOWN INDICATION
  12. BENAZEPRIL HYDROCHLORIDE [Concomitant]
     Indication: DRUG USE FOR UNKNOWN INDICATION
  13. PREDNISONE TAB [Concomitant]
     Indication: DRUG USE FOR UNKNOWN INDICATION
     Dates: start: 20070301
  14. INSULIN ASPART [Concomitant]
     Indication: DRUG USE FOR UNKNOWN INDICATION
     Dates: start: 20000101
  15. IBUPROFEN [Concomitant]
     Indication: DRUG USE FOR UNKNOWN INDICATION
  16. LAMOTRIGINE [Concomitant]
  17. GABAPENTIN [Concomitant]
  18. MODAFINIL [Concomitant]
  19. METHYLPREDNISOLONE 16MG TAB [Concomitant]
     Dosage: DOSE PACK
  20. INSULIN ASPART [Concomitant]
     Dosage: INSULIN PUMP
  21. CANNABIS SATIVA [Concomitant]
     Indication: DRUG USE FOR UNKNOWN INDICATION
  22. PARACETAMOL [Concomitant]
     Indication: PAIN

REACTIONS (63)
  - ABDOMINAL DISTENSION [None]
  - ABDOMINAL PAIN [None]
  - ACARODERMATITIS [None]
  - ANOREXIA [None]
  - ASCITES [None]
  - ASTHENIA [None]
  - BACK PAIN [None]
  - BACTERIAL INFECTION [None]
  - BILE DUCT STONE [None]
  - BRONCHITIS [None]
  - CELLULITIS [None]
  - CHOLESTASIS [None]
  - CONSTIPATION [None]
  - COSTOCHONDRITIS [None]
  - COUGH [None]
  - DIABETIC COMA [None]
  - DIABETIC COMPLICATION [None]
  - DYSPNOEA [None]
  - FATIGUE [None]
  - GASTROENTERITIS [None]
  - GOITRE [None]
  - HEPATIC CIRRHOSIS [None]
  - HEPATIC ENZYME INCREASED [None]
  - HEPATIC FAILURE [None]
  - HEPATIC NECROSIS [None]
  - HEPATIC STEATOSIS [None]
  - HEPATITIS [None]
  - HEPATOMEGALY [None]
  - HYPERHIDROSIS [None]
  - HYPONATRAEMIA [None]
  - HYPOXIA [None]
  - JAUNDICE [None]
  - JAUNDICE CHOLESTATIC [None]
  - LIVER ABSCESS [None]
  - LIVER DISORDER [None]
  - LOBAR PNEUMONIA [None]
  - MYOPIA [None]
  - NAUSEA [None]
  - NECK PAIN [None]
  - OCULAR ICTERUS [None]
  - OEDEMA PERIPHERAL [None]
  - PARAESTHESIA [None]
  - PNEUMONIA [None]
  - PRODUCTIVE COUGH [None]
  - PROTHROMBIN TIME PROLONGED [None]
  - PRURITUS [None]
  - PYREXIA [None]
  - RASH [None]
  - RESPIRATORY FAILURE [None]
  - SENSORY LOSS [None]
  - SKIN DISORDER [None]
  - SKIN INFECTION [None]
  - SMALL INTESTINAL OBSTRUCTION [None]
  - SPLENOMEGALY [None]
  - SPUTUM DISCOLOURED [None]
  - SUBCLAVIAN VEIN THROMBOSIS [None]
  - SUBCUTANEOUS ABSCESS [None]
  - THROMBOPHLEBITIS [None]
  - VENA CAVA THROMBOSIS [None]
  - VENOUS THROMBOSIS [None]
  - VISION BLURRED [None]
  - VOMITING [None]
  - WHEEZING [None]
